FAERS Safety Report 10614975 (Version 1)
Quarter: 2014Q4

REPORT INFORMATION
  Report Type: Spontaneous
  Country: CA (occurrence: CA)
  Receive Date: 20141201
  Receipt Date: 20141201
  Transmission Date: 20150529
  Serious: Yes (Hospitalization)
  Sender: FDA-Public Use
  Company Number: CA-ROCHE-1495846

PATIENT
  Sex: Female

DRUGS (9)
  1. FLAXSEED [Concomitant]
     Active Substance: FLAX SEED
     Route: 065
  2. RITUXAN [Suspect]
     Active Substance: RITUXIMAB
     Indication: PRODUCT USED FOR UNKNOWN INDICATION
     Route: 042
  3. ACETAMINOPHEN. [Concomitant]
     Active Substance: ACETAMINOPHEN
     Route: 065
  4. ARAVA [Suspect]
     Active Substance: LEFLUNOMIDE
     Indication: PRODUCT USED FOR UNKNOWN INDICATION
     Route: 065
  5. GABAPENTIN. [Suspect]
     Active Substance: GABAPENTIN
     Indication: PRODUCT USED FOR UNKNOWN INDICATION
     Route: 065
  6. PANTOLOC [Concomitant]
     Active Substance: PANTOPRAZOLE SODIUM
     Route: 065
  7. VITAMIN C [Concomitant]
     Active Substance: ASCORBIC ACID
     Route: 065
  8. ZOPLICONE (UNK INGREDIENTS) [Concomitant]
     Route: 065
  9. EZETROL [Concomitant]
     Active Substance: EZETIMIBE
     Route: 065

REACTIONS (4)
  - Crohn^s disease [Unknown]
  - Dehydration [Unknown]
  - Malnutrition [Unknown]
  - Weight decreased [Unknown]
